FAERS Safety Report 14588600 (Version 1)
Quarter: 2018Q1

REPORT INFORMATION
  Report Type: Spontaneous
  Country: US (occurrence: US)
  Receive Date: 20180301
  Receipt Date: 20180301
  Transmission Date: 20180509
  Serious: Yes (Hospitalization, Other)
  Sender: FDA-Public Use
  Company Number: US-GLAXOSMITHKLINE-US2018033712

PATIENT
  Age: 74 Year
  Sex: Male

DRUGS (8)
  1. MOXIFLOXACIN. [Concomitant]
     Active Substance: MOXIFLOXACIN
  2. MUCINEX [Concomitant]
     Active Substance: GUAIFENESIN
  3. ADVAIR DISKUS [Suspect]
     Active Substance: FLUTICASONE PROPIONATE\SALMETEROL XINAFOATE
     Indication: CHRONIC OBSTRUCTIVE PULMONARY DISEASE
     Dosage: 1 PUFF(S), BID
     Route: 055
     Dates: start: 2010
  4. PEPCID [Concomitant]
     Active Substance: FAMOTIDINE
  5. SPIRIVA [Concomitant]
     Active Substance: TIOTROPIUM BROMIDE MONOHYDRATE
  6. DALIRESP [Concomitant]
     Active Substance: ROFLUMILAST
  7. ADVAIR DISKUS [Suspect]
     Active Substance: FLUTICASONE PROPIONATE\SALMETEROL XINAFOATE
     Indication: EMPHYSEMA
  8. LEVOTHYROXINE. [Concomitant]
     Active Substance: LEVOTHYROXINE

REACTIONS (7)
  - Sputum increased [Not Recovered/Not Resolved]
  - Productive cough [Unknown]
  - Dyspnoea [Recovering/Resolving]
  - Oxygen therapy [Not Recovered/Not Resolved]
  - Candida infection [Recovered/Resolved]
  - Respiratory tract infection [Not Recovered/Not Resolved]
  - Asthenia [Recovered/Resolved]

NARRATIVE: CASE EVENT DATE: 201711
